FAERS Safety Report 15572405 (Version 3)
Quarter: 2019Q1

REPORT INFORMATION
  Report Type: Report from Study
  Country: US (occurrence: US)
  Receive Date: 20181031
  Receipt Date: 20190206
  Transmission Date: 20190417
  Serious: Yes (Death, Other)
  Sender: FDA-Public Use
  Company Number: US-PFIZER INC-2018336750

PATIENT
  Age: 49 Year
  Sex: Female

DRUGS (5)
  1. FASLODEX [Concomitant]
     Active Substance: FULVESTRANT
     Dosage: UNK
     Dates: start: 201807
  2. IBRANCE [Suspect]
     Active Substance: PALBOCICLIB
     Indication: BREAST CANCER METASTATIC
     Dosage: 125 MG, CYCLIC DAILY, (21 DAYS, 7 DAYS OFF)
     Route: 048
     Dates: start: 20180717, end: 20180806
  3. IBRANCE [Suspect]
     Active Substance: PALBOCICLIB
     Dosage: 125 MG, DAILY
     Route: 048
     Dates: end: 201810
  4. IBRANCE [Suspect]
     Active Substance: PALBOCICLIB
     Dosage: 125 MG, CYCLIC (DAILY FOR 21 DAYS OF 28 DAY CYCLE)
     Route: 048
     Dates: start: 201807
  5. IBRANCE [Suspect]
     Active Substance: PALBOCICLIB
     Dosage: 125 MG, CYCLIC (21 DAYS, 7 DAYS OFF)
     Route: 048
     Dates: start: 20180817, end: 20180927

REACTIONS (16)
  - Death [Fatal]
  - Feeling abnormal [Unknown]
  - White blood cell count decreased [Recovering/Resolving]
  - Nasal congestion [Unknown]
  - Nausea [Unknown]
  - Pain [Unknown]
  - Cytopenia [Recovered/Resolved]
  - Insomnia [Unknown]
  - Cough [Unknown]
  - Oropharyngeal pain [Unknown]
  - Hypersensitivity [Unknown]
  - Vomiting [Unknown]
  - Neoplasm progression [Unknown]
  - Neutropenia [Unknown]
  - Fatigue [Not Recovered/Not Resolved]
  - Middle insomnia [Unknown]

NARRATIVE: CASE EVENT DATE: 2018
